FAERS Safety Report 5353810-0 (Version None)
Quarter: 2007Q2

REPORT INFORMATION
  Report Type: 
  Country: None (occurrence: None)
  Receive Date: 20070608
  Receipt Date: 20070608
  Transmission Date: 20071010
  Serious: Yes (Other)
  Sender: FDA-Public Use
  Company Number: None

PATIENT
  Age: 82 Year
  Sex: Male
  Weight: 60.7 kg

DRUGS (1)
  1. TEMODAR [Suspect]
     Indication: METASTATIC MALIGNANT MELANOMA
     Dosage: 200 MG QD X 5 Q21 DAYS PO
     Route: 048
     Dates: start: 20060712, end: 20070327

REACTIONS (1)
  - IDIOPATHIC THROMBOCYTOPENIC PURPURA [None]
